FAERS Safety Report 12092461 (Version 1)
Quarter: 2016Q1

REPORT INFORMATION
  Report Type: Spontaneous
  Country: PE (occurrence: PE)
  Receive Date: 20160219
  Receipt Date: 20160219
  Transmission Date: 20160526
  Serious: Yes (Other)
  Sender: FDA-Public Use
  Company Number: PE-AMGEN-PERSP2016018185

PATIENT

DRUGS (1)
  1. ENBREL [Suspect]
     Active Substance: ETANERCEPT
     Indication: MATERNAL EXPOSURE DURING PREGNANCY
     Dosage: UNK UNK, UNK
     Route: 064

REACTIONS (3)
  - Leukaemia [Not Recovered/Not Resolved]
  - Maternal exposure during pregnancy [Unknown]
  - Trisomy 21 [Not Recovered/Not Resolved]
